FAERS Safety Report 22529532 (Version 1)
Quarter: 2023Q2

REPORT INFORMATION
  Report Type: Spontaneous
  Country: CN (occurrence: CN)
  Receive Date: 20230607
  Receipt Date: 20230607
  Transmission Date: 20230721
  Serious: Yes (Hospitalization, Other)
  Sender: FDA-Public Use
  Company Number: CN-GLAXOSMITHKLINE-CN2023APC077405

PATIENT

DRUGS (4)
  1. SERETIDE [Suspect]
     Active Substance: FLUTICASONE PROPIONATE\SALMETEROL XINAFOATE
     Indication: Asthma
     Dosage: 1 PUFF(S), BID 50/250UG
     Dates: start: 2007
  2. SERETIDE [Suspect]
     Active Substance: FLUTICASONE PROPIONATE\SALMETEROL XINAFOATE
     Dosage: UNK, 50/500UG
  3. BUDESONIDE [Concomitant]
     Active Substance: BUDESONIDE
     Indication: Asthma
     Dosage: UNK
     Route: 055
  4. BRICANYL [Concomitant]
     Active Substance: TERBUTALINE SULFATE
     Indication: Asthma
     Dosage: UNK
     Route: 055

REACTIONS (9)
  - Cardiac disorder [Unknown]
  - Dyspnoea [Unknown]
  - Hypothyroidism [Unknown]
  - Pericardial effusion [Recovered/Resolved]
  - Asthma [Unknown]
  - Fat tissue increased [Not Recovered/Not Resolved]
  - Oral candidiasis [Not Recovered/Not Resolved]
  - Coronary artery disease [Unknown]
  - Incorrect dose administered [Unknown]
